FAERS Safety Report 16136134 (Version 1)
Quarter: 2019Q1

REPORT INFORMATION
  Report Type: Report from Study
  Country: None (occurrence: AR)
  Receive Date: 20190331
  Receipt Date: 20190331
  Transmission Date: 20190418
  Serious: Yes (Other)
  Sender: FDA-Public Use
  Company Number: AR-ABBVIE-19K-007-2726856-00

PATIENT
  Age: 26 Year
  Sex: Female

DRUGS (1)
  1. HUMIRA [Suspect]
     Active Substance: ADALIMUMAB
     Indication: COLITIS ULCERATIVE
     Route: 058
     Dates: start: 20180428

REACTIONS (3)
  - Haemoglobin decreased [Not Recovered/Not Resolved]
  - Haematochezia [Unknown]
  - Colitis ulcerative [Not Recovered/Not Resolved]

NARRATIVE: CASE EVENT DATE: 201902
